FAERS Safety Report 19064675 (Version 1)
Quarter: 2021Q1

REPORT INFORMATION
  Report Type: Spontaneous
  Country: US (occurrence: US)
  Receive Date: 20210326
  Receipt Date: 20210326
  Transmission Date: 20210420
  Serious: Yes (Hospitalization, Other)
  Sender: FDA-Public Use
  Company Number: US-PURDUE PHARMA-USA-2020-0154456

PATIENT
  Sex: Female

DRUGS (2)
  1. OXYCODONE/ ACETAMINOPHEN TABLETS [Suspect]
     Active Substance: ACETAMINOPHEN\OXYCODONE HYDROCHLORIDE
     Indication: PAIN
     Dosage: 5 TABLET (10?325 MG), DAILY
     Route: 048
     Dates: start: 2002
  2. OXYCONTIN [Suspect]
     Active Substance: OXYCODONE HYDROCHLORIDE
     Indication: PAIN
     Dosage: 20 MG, Q4? 6H
     Route: 048
     Dates: start: 2000, end: 2002

REACTIONS (7)
  - Panic disorder [Unknown]
  - Drug dependence [Not Recovered/Not Resolved]
  - Spinal operation [Unknown]
  - Pruritus [Recovered/Resolved]
  - Gait inability [Unknown]
  - Disorientation [Unknown]
  - Cardiac failure congestive [Not Recovered/Not Resolved]
